FAERS Safety Report 5840622-4 (Version None)
Quarter: 2008Q3

REPORT INFORMATION
  Report Type: 
  Country: None (occurrence: None)
  Receive Date: 20080811
  Receipt Date: 20080730
  Transmission Date: 20090109
  Serious: Yes (Other)
  Sender: FDA-Public Use
  Company Number: US-PFIZER INC-2008064020

PATIENT
  Sex: Male
  Weight: 106.6 kg

DRUGS (2)
  1. SERTRALINE [Suspect]
     Indication: ANXIETY
  2. SERTRALINE [Suspect]
     Indication: DEPRESSION

REACTIONS (5)
  - ASTHMA [None]
  - CHRONIC OBSTRUCTIVE PULMONARY DISEASE [None]
  - DRUG SCREEN POSITIVE [None]
  - STAPHYLOCOCCAL INFECTION [None]
  - TYPE 2 DIABETES MELLITUS [None]
